FAERS Safety Report 8499836-X (Version None)
Quarter: 2012Q3

REPORT INFORMATION
  Report Type: 
  Country: None (occurrence: None)
  Receive Date: 20120710
  Receipt Date: 20120705
  Transmission Date: 20120928
  Serious: Yes (Other)
  Sender: FDA-Public Use
  Company Number: GB-PFIZER INC-2012160954

PATIENT
  Age: 33 Year
  Sex: Female
  Weight: 57.9 kg

DRUGS (2)
  1. INSULIN [Concomitant]
     Indication: DIABETES MELLITUS
     Dosage: TAKING INSULIN FOR 22 YEARS
  2. VARENICLINE TARTRATE [Suspect]
     Indication: SMOKING CESSATION THERAPY
     Dosage: FULL DOSE
     Dates: start: 20120421, end: 20120520

REACTIONS (7)
  - FEELING ABNORMAL [None]
  - SELF-INJURIOUS IDEATION [None]
  - MOOD SWINGS [None]
  - CRYING [None]
  - ANGER [None]
  - HEADACHE [None]
  - TENSION [None]
